FAERS Safety Report 9184569 (Version 1)
Quarter: 2012Q4

REPORT INFORMATION
  Report Type: 
  Country: NL (occurrence: NL)
  Receive Date: 20121031
  Receipt Date: 20121031
  Transmission Date: 20130627
  Serious: Yes (Other)
  Sender: FDA-Public Use
  Company Number: PHHY2012NL090721

PATIENT
  Sex: Male

DRUGS (3)
  1. ZOMETA [Suspect]
     Indication: PROSTATE CANCER METASTATIC
     Dosage: 4 mg/ 100 ml,once per 28 days
     Dates: start: 20111123
  2. ZOMETA [Suspect]
     Dosage: 4 mg,4 mg/ 100 ml,once per 28 days
     Dates: start: 20120905
  3. ZOMETA [Suspect]
     Dosage: 4 mg/ 100 ml,once per 28 days
     Dates: start: 20121003

REACTIONS (1)
  - General physical health deterioration [Unknown]
